FAERS Safety Report 5274123-1 (Version None)
Quarter: 2007Q1

REPORT INFORMATION
  Report Type: 
  Country: None (occurrence: None)
  Receive Date: 20070323
  Receipt Date: 20070309
  Transmission Date: 20070707
  Serious: Yes (Hospitalization)
  Sender: FDA-Public Use
  Company Number: 2007AP01564

PATIENT
  Age: 41 Year
  Sex: Female

DRUGS (2)
  1. DIPRIVAN [Suspect]
     Route: 042
     Dates: start: 20070301
  2. DIPRIVAN [Suspect]
     Route: 042
     Dates: end: 20070305

REACTIONS (1)
  - PANCYTOPENIA [None]
